FAERS Safety Report 10443955 (Version 1)
Quarter: 2014Q3

REPORT INFORMATION
  Report Type: Spontaneous
  Country: US (occurrence: US)
  Receive Date: 20140910
  Receipt Date: 20140910
  Transmission Date: 20150326
  Serious: No
  Sender: FDA-Public Use
  Company Number: US-TARO-2014P1001003

PATIENT
  Age: 79 Year
  Sex: Female

DRUGS (5)
  1. WARFARIN SODIUM TABLETS USP 2.5MG [Suspect]
     Active Substance: WARFARIN SODIUM
     Route: 048
     Dates: start: 201401
  2. WARFARIN SODIUM TABLETS USP 2.5MG [Suspect]
     Active Substance: WARFARIN SODIUM
     Indication: ATRIAL FIBRILLATION
     Dosage: 2.5 MG
     Route: 048
     Dates: start: 20131205, end: 201401
  3. WARFARIN SODIUM TABLETS USP 2.5MG [Suspect]
     Active Substance: WARFARIN SODIUM
     Dosage: 2.5 MG
     Route: 048
     Dates: start: 201401
  4. UNSPECIFIED MEDICATIONS [Concomitant]
     Active Substance: UNSPECIFIED INGREDIENT
  5. WARFARIN SODIUM TABLETS USP 2.5MG [Suspect]
     Active Substance: WARFARIN SODIUM
     Route: 048
     Dates: start: 20131205, end: 201401

REACTIONS (2)
  - Contusion [Recovering/Resolving]
  - International normalised ratio increased [Recovered/Resolved]

NARRATIVE: CASE EVENT DATE: 201312
